FAERS Safety Report 17494785 (Version 2)
Quarter: 2020Q2

REPORT INFORMATION
  Report Type: Spontaneous
  Country: US (occurrence: US)
  Receive Date: 20200303
  Receipt Date: 20200513
  Transmission Date: 20200713
  Serious: Yes (Death)
  Sender: FDA-Public Use
  Company Number: US-AMNEAL PHARMACEUTICALS-2019-AMRX-02995

PATIENT
  Age: 80 Year
  Sex: Female

DRUGS (1)
  1. RYTARY [Suspect]
     Active Substance: CARBIDOPA\LEVODOPA
     Indication: PARKINSON^S DISEASE
     Dosage: 3 CAPSULES, 4X/DAY
     Route: 048
     Dates: start: 201809

REACTIONS (3)
  - Weight decreased [Recovering/Resolving]
  - Dysphagia [Unknown]
  - Adverse event [Fatal]

NARRATIVE: CASE EVENT DATE: 2019
